FAERS Safety Report 15349327 (Version 1)
Quarter: 2018Q4

REPORT INFORMATION
  Report Type: Spontaneous
  Country: HR (occurrence: HR)
  Receive Date: 20180904
  Receipt Date: 20180904
  Transmission Date: 20190204
  Serious: Yes (Hospitalization)
  Sender: FDA-Public Use
  Company Number: HR-MYLANLABS-2018M1065018

PATIENT
  Age: 26 Year
  Sex: Male

DRUGS (5)
  1. CIPROFLOXACIN. [Interacting]
     Active Substance: CIPROFLOXACIN
     Indication: PRODUCT USED FOR UNKNOWN INDICATION
     Route: 065
  2. PIPERACILLIN/TAZOBACTAM [Interacting]
     Active Substance: PIPERACILLIN SODIUM\TAZOBACTAM SODIUM
     Indication: PRODUCT USED FOR UNKNOWN INDICATION
     Route: 065
  3. KETOPROFEN. [Interacting]
     Active Substance: KETOPROFEN
     Indication: PRODUCT USED FOR UNKNOWN INDICATION
     Route: 065
  4. METHOTREXATE. [Suspect]
     Active Substance: METHOTREXATE
     Indication: B PRECURSOR TYPE ACUTE LEUKAEMIA
     Dosage: TWO INFUSIONS AT AN INTERVAL OF 14 DAYS.
     Route: 041
  5. PANTOPRAZOLE [Interacting]
     Active Substance: PANTOPRAZOLE
     Indication: PRODUCT USED FOR UNKNOWN INDICATION
     Route: 065

REACTIONS (6)
  - Posterior reversible encephalopathy syndrome [Recovering/Resolving]
  - Agranulocytosis [Recovered/Resolved]
  - Drug level increased [Recovered/Resolved]
  - Drug-induced liver injury [Recovering/Resolving]
  - Drug interaction [Recovering/Resolving]
  - Acute kidney injury [Recovering/Resolving]
